FAERS Safety Report 5415151-2 (Version None)
Quarter: 2007Q3

REPORT INFORMATION
  Report Type: 
  Country: None (occurrence: None)
  Receive Date: 20070815
  Receipt Date: 20070702
  Transmission Date: 20080115
  Serious: No
  Sender: FDA-Public Use
  Company Number: A0661469A

PATIENT
  Age: 78 Year
  Sex: Male

DRUGS (14)
  1. COREG CR [Suspect]
     Dosage: 20MG PER DAY
     Route: 048
     Dates: start: 20070629
  2. PLAVIX [Concomitant]
  3. QUINAPRIL HCL [Concomitant]
  4. SOTALOL HYDROCHLORIDE [Concomitant]
  5. ACTOS [Concomitant]
  6. GLIPIZIDE [Concomitant]
  7. CYMBALTA [Concomitant]
  8. ASCORBIC ACID [Concomitant]
  9. ECOTRIN [Concomitant]
  10. VITAMIN E [Concomitant]
  11. PROTONIX [Concomitant]
  12. FENTANYL [Concomitant]
  13. OXYCODONE HCL [Concomitant]
  14. SENOKOT [Concomitant]

REACTIONS (4)
  - ASTHENIA [None]
  - BLOOD GLUCOSE INCREASED [None]
  - NAUSEA [None]
  - TREMOR [None]
